FAERS Safety Report 14524026 (Version 5)
Quarter: 2018Q3

REPORT INFORMATION
  Report Type: Spontaneous
  Country: FR (occurrence: FR)
  Receive Date: 20180213
  Receipt Date: 20180731
  Transmission Date: 20181010
  Serious: Yes (Death, Other)
  Sender: FDA-Public Use
  Company Number: FR-ABBVIE-18P-056-2254167-00

PATIENT
  Sex: Male

DRUGS (1)
  1. DEPAKINE CHRONO [Suspect]
     Active Substance: VALPROATE SODIUM
     Indication: MATERNAL EXPOSURE TIMING UNSPECIFIED
     Route: 064

REACTIONS (7)
  - Nervous system disorder [Unknown]
  - Pancreatic carcinoma [Unknown]
  - Insomnia [Unknown]
  - Mood swings [Unknown]
  - Death [Fatal]
  - Eating disorder [Unknown]
  - Foetal exposure during pregnancy [Unknown]
